FAERS Safety Report 6218949-6 (Version None)
Quarter: 2009Q2

REPORT INFORMATION
  Report Type: 
  Country: None (occurrence: None)
  Receive Date: 20090608
  Receipt Date: 20090529
  Transmission Date: 20091009
  Serious: Yes (Hospitalization, Other)
  Sender: FDA-Public Use
  Company Number: PHEH2009US03425

PATIENT
  Sex: Female

DRUGS (12)
  1. RECLAST [Suspect]
     Indication: OSTEOPOROSIS
     Dosage: HALF DOSE, UNK
     Dates: start: 20090227
  2. RECLAST [Suspect]
     Dosage: HALF DOSE, UNK
     Dates: start: 20090305
  3. REMICADE [Concomitant]
  4. PREDNISONE [Concomitant]
  5. METHOTREXATE [Concomitant]
  6. VITAMIN D [Concomitant]
  7. FOLIC ACID [Concomitant]
  8. CELEBREX [Concomitant]
  9. CALCIUM [Concomitant]
     Dosage: 1200 MG, UNK
  10. THYROID PREPARATIONS [Concomitant]
  11. SYNTHROID [Concomitant]
  12. FELODIPINE [Concomitant]

REACTIONS (15)
  - BLOOD CALCIUM DECREASED [None]
  - BLOOD PRESSURE FLUCTUATION [None]
  - BLOOD SODIUM DECREASED [None]
  - DIZZINESS [None]
  - EATING DISORDER [None]
  - FLUID INTAKE REDUCED [None]
  - GASTROENTERITIS VIRAL [None]
  - HYPERTENSION [None]
  - HYPOPHAGIA [None]
  - HYPOTENSION [None]
  - MALAISE [None]
  - NAUSEA [None]
  - STRESS [None]
  - VOMITING [None]
  - WEIGHT DECREASED [None]
